FAERS Safety Report 5522861-5 (Version None)
Quarter: 2007Q4

REPORT INFORMATION
  Report Type: 
  Country: None (occurrence: None)
  Receive Date: 20071116
  Receipt Date: 20071112
  Transmission Date: 20080405
  Serious: Yes (Hospitalization)
  Sender: FDA-Public Use
  Company Number: 2007AL004790

PATIENT
  Age: 79 Year
  Sex: Male

DRUGS (10)
  1. RIFAMPIN [Suspect]
     Indication: PROPHYLAXIS
     Dosage: 300 MG;BID;PO
     Route: 048
  2. WARFARIN SODIUM [Concomitant]
  3. ENOXAPARIN SODIUM [Concomitant]
  4. ERTAPENEM SODIUM [Concomitant]
  5. VANCOMYCIN [Concomitant]
  6. AMLODIPINE [Concomitant]
  7. CALCIUM CARBONATE [Concomitant]
  8. METFORMIN HCL [Concomitant]
  9. PANTOPRAZOLE SODIUM [Concomitant]
  10. TERAZOSIN HCL [Concomitant]

REACTIONS (2)
  - DRUG INTERACTION [None]
  - INTERNATIONAL NORMALISED RATIO DECREASED [None]
